FAERS Safety Report 8820767 (Version 2)
Quarter: 2012Q4

REPORT INFORMATION
  Report Type: 
  Country: US (occurrence: US)
  Receive Date: 20121002
  Receipt Date: 20121012
  Transmission Date: 20130627
  Serious: Yes (Other)
  Sender: FDA-Public Use
  Company Number: US-US-EMD SERONO, INC.-7163284

PATIENT
  Sex: Female
  Weight: 94 kg

DRUGS (4)
  1. REBIF [Suspect]
     Indication: MULTIPLE SCLEROSIS
     Route: 058
     Dates: start: 2006
  2. GABAPENTIN [Concomitant]
     Indication: PAIN
  3. BACLOFEN [Concomitant]
     Indication: MUSCLE SPASTICITY
  4. CELEXA [Concomitant]
     Indication: DEPRESSION
     Route: 048

REACTIONS (4)
  - Intestinal perforation [Recovering/Resolving]
  - Muscle spasticity [Unknown]
  - Paraesthesia [Unknown]
  - Hypoaesthesia [Unknown]
